FAERS Safety Report 11897807 (Version 1)
Quarter: 2016Q1

REPORT INFORMATION
  Report Type: Spontaneous
  Country: US (occurrence: None)
  Receive Date: 20160106
  Receipt Date: 20160106
  Transmission Date: 20160526
  Serious: Yes (Hospitalization)
  Sender: FDA-Public Use
  Company Number: None

PATIENT
  Age: 66 Year
  Sex: Male

DRUGS (2)
  1. PRAZOSIN [Suspect]
     Active Substance: PRAZOSIN
     Indication: NIGHTMARE
     Dosage: MG PO
     Route: 048
     Dates: start: 20150916, end: 20151001
  2. TAMSULOSIN [Suspect]
     Active Substance: TAMSULOSIN
     Indication: BENIGN PROSTATIC HYPERPLASIA
     Dosage: MG PO
     Route: 048
     Dates: start: 20150522, end: 20151001

REACTIONS (9)
  - Lethargy [None]
  - Fall [None]
  - Malaise [None]
  - Somnolence [None]
  - Chest injury [None]
  - Feeling abnormal [None]
  - Dizziness [None]
  - Self-medication [None]
  - Hypotension [None]

NARRATIVE: CASE EVENT DATE: 20150930
